FAERS Safety Report 13552350 (Version 1)
Quarter: 2017Q2

REPORT INFORMATION
  Report Type: Spontaneous
  Country: US (occurrence: US)
  Receive Date: 20170517
  Receipt Date: 20170517
  Transmission Date: 20170830
  Serious: No
  Sender: FDA-Public Use
  Company Number: US-BAUSCH-BL-2017-002895

PATIENT
  Age: 61 Year
  Sex: Male

DRUGS (2)
  1. LATANOPROST OPHTHALMIC SOLUTION 0.005% [Suspect]
     Active Substance: LATANOPROST
     Indication: GLAUCOMA
     Dosage: 1 DROP IN EACH EYE
     Route: 047
     Dates: start: 20160920
  2. LATANOPROST OPHTHALMIC SOLUTION 0.005% [Suspect]
     Active Substance: LATANOPROST
     Dosage: IN EACH EYE
     Route: 047
     Dates: start: 201701, end: 20170129

REACTIONS (6)
  - Burning sensation [Recovering/Resolving]
  - Sunburn [Recovering/Resolving]
  - Pain [Recovered/Resolved]
  - Intraocular pressure increased [Unknown]
  - Skin swelling [Recovering/Resolving]
  - Erythema [Recovering/Resolving]

NARRATIVE: CASE EVENT DATE: 201609
